FAERS Safety Report 4489185-9 (Version None)
Quarter: 2004Q4

REPORT INFORMATION
  Report Type: 
  Country: None (occurrence: None)
  Receive Date: 20041029
  Receipt Date: 20041019
  Transmission Date: 20050328
  Serious: Yes (Other)
  Sender: FDA-Public Use
  Company Number: US-JNJFOC-20041006085

PATIENT
  Age: 33 Year
  Sex: Female

DRUGS (22)
  1. DURAGESIC [Suspect]
     Route: 062
  2. DURAGESIC [Suspect]
     Route: 062
  3. DURAGESIC [Suspect]
     Dosage: ONE OR TWO EVERY 72 HOURS
     Route: 062
  4. ATENOLOL [Concomitant]
     Indication: BLOOD PRESSURE
     Route: 049
  5. GUAIFENSIN [Concomitant]
     Indication: RESPIRATORY TRACT CONGESTION
     Route: 049
  6. TRICOR [Concomitant]
     Route: 049
  7. LASIX [Concomitant]
     Route: 049
  8. SINGULAIR [Concomitant]
     Route: 049
  9. UNIPHYL [Concomitant]
     Route: 049
  10. PAXIL [Concomitant]
     Indication: DEPRESSION
     Route: 049
  11. MAXAIR [Concomitant]
     Route: 055
  12. FLONASE [Concomitant]
     Route: 055
  13. SEREVENT [Concomitant]
     Route: 049
  14. NORCO [Concomitant]
     Route: 049
  15. NORCO [Concomitant]
     Indication: PAIN
     Route: 049
  16. KLONOPIN [Concomitant]
     Route: 049
  17. PROMETHAZINE [Concomitant]
     Indication: COUGH
     Route: 049
  18. SOMA [Concomitant]
     Route: 049
  19. AUGMENTIN '125' [Concomitant]
     Route: 049
  20. AUGMENTIN '125' [Concomitant]
     Indication: SWELLING
     Route: 049
  21. BETHANECOL [Concomitant]
     Indication: URINARY RETENTION
     Route: 049
  22. BENADRYL [Concomitant]
     Indication: SWELLING
     Route: 049

REACTIONS (7)
  - BLOOD PRESSURE INCREASED [None]
  - LOCAL SWELLING [None]
  - OEDEMA PERIPHERAL [None]
  - PAIN EXACERBATED [None]
  - PAIN IN EXTREMITY [None]
  - SWELLING FACE [None]
  - WEIGHT INCREASED [None]
